FAERS Safety Report 7453668-X (Version None)
Quarter: 2011Q2

REPORT INFORMATION
  Report Type: 
  Country: None (occurrence: None)
  Receive Date: 20110502
  Receipt Date: 20110106
  Transmission Date: 20111010
  Serious: No
  Sender: FDA-Public Use
  Company Number: US-ASTRAZENECA-2011SE00974

PATIENT
  Age: 29 Year
  Sex: Female

DRUGS (3)
  1. NEXIUM [Suspect]
     Indication: GASTROOESOPHAGEAL REFLUX DISEASE
     Route: 048
     Dates: start: 20030101
  2. BIRTH CONTROL [Concomitant]
  3. MULTI-VITAMIN [Concomitant]

REACTIONS (3)
  - DRUG DOSE OMISSION [None]
  - ERUCTATION [None]
  - DYSPEPSIA [None]
